FAERS Safety Report 18157148 (Version 3)
Quarter: 2020Q4

REPORT INFORMATION
  Report Type: Spontaneous
  Country: JP (occurrence: JP)
  Receive Date: 20200817
  Receipt Date: 20201208
  Transmission Date: 20210113
  Serious: Yes (Life-Threatening, Hospitalization, Other)
  Sender: FDA-Public Use
  Company Number: JP-ASTRAZENECA-2020SE99896

PATIENT
  Age: 17224 Day
  Sex: Male
  Weight: 52 kg

DRUGS (3)
  1. INSULIN GLARGINE [Concomitant]
     Active Substance: INSULIN GLARGINE
     Indication: FULMINANT TYPE 1 DIABETES MELLITUS
     Dosage: 20 IU INTERNATIONAL UNIT(S), 1/DAY, LONG-ACTING
     Route: 058
     Dates: start: 2009, end: 20190319
  2. FORXIGA [Suspect]
     Active Substance: DAPAGLIFLOZIN
     Indication: FULMINANT TYPE 1 DIABETES MELLITUS
     Route: 048
     Dates: start: 2019, end: 20190324
  3. HUMALOG [Concomitant]
     Active Substance: INSULIN LISPRO
     Indication: FULMINANT TYPE 1 DIABETES MELLITUS
     Dosage: 14 IU INTERNATIONAL UNIT(S), 1/DAY
     Route: 058
     Dates: start: 2009, end: 20190323

REACTIONS (6)
  - Hypophagia [Unknown]
  - Infection [Unknown]
  - Decreased appetite [Unknown]
  - Diabetic ketoacidosis [Recovered/Resolved]
  - Dehydration [Unknown]
  - General physical health deterioration [Unknown]

NARRATIVE: CASE EVENT DATE: 20190323
